FAERS Safety Report 5342771-6 (Version None)
Quarter: 2007Q2

REPORT INFORMATION
  Report Type: 
  Country: None (occurrence: None)
  Receive Date: 20070601
  Receipt Date: 20070522
  Transmission Date: 20071010
  Serious: Yes (Death)
  Sender: FDA-Public Use
  Company Number: CL-ABBOTT-07P-034-0366639-00

PATIENT
  Sex: Male

DRUGS (1)
  1. KALETRA [Suspect]
     Indication: DRUG USE FOR UNKNOWN INDICATION
     Dosage: 400/100 MG
     Dates: start: 20060629, end: 20070417

REACTIONS (4)
  - CEREBRAL HAEMORRHAGE [None]
  - LOSS OF CONSCIOUSNESS [None]
  - PROTHROMBIN TIME ABNORMAL [None]
  - TRANSAMINASES ABNORMAL [None]
